FAERS Safety Report 8196689-4 (Version None)
Quarter: 2012Q1

REPORT INFORMATION
  Report Type: 
  Country: None (occurrence: None)
  Receive Date: 20120309
  Receipt Date: 20120305
  Transmission Date: 20120608
  Serious: Yes (Hospitalization)
  Sender: FDA-Public Use
  Company Number: US-BAYER-2012-016991

PATIENT
  Age: 46 Year
  Sex: Female
  Weight: 61.36 kg

DRUGS (6)
  1. IBUPROFEN [Concomitant]
     Dosage: 800 MG, TID
     Route: 048
  2. YAZ [Suspect]
     Dosage: UNK
     Dates: start: 20101201
  3. CYMBALTA [Concomitant]
     Dosage: 120 MG, QD
     Route: 048
  4. LYRICA [Concomitant]
     Dosage: 300 MG IN MORNING AND 150 MG AT NIGHT
     Route: 048
  5. OXYCONTIN [Concomitant]
     Dosage: 10 MG, TID
     Route: 048
  6. PERCOCET [Concomitant]
     Dosage: UNK UNK, QID
     Route: 048

REACTIONS (3)
  - PULMONARY EMBOLISM [None]
  - DEEP VEIN THROMBOSIS [None]
  - PULMONARY INFARCTION [None]
